FAERS Safety Report 23693255 (Version 1)
Quarter: 2024Q2

REPORT INFORMATION
  Report Type: Spontaneous
  Country: US (occurrence: US)
  Receive Date: 20240401
  Receipt Date: 20240401
  Transmission Date: 20240716
  Serious: Yes (Hospitalization, Other)
  Sender: FDA-Public Use
  Company Number: US-AUROBINDO-AUR-APL-2024-011688

PATIENT
  Age: 60 Year
  Sex: Male

DRUGS (7)
  1. ARIPIPRAZOLE [Interacting]
     Active Substance: ARIPIPRAZOLE
     Indication: Antipsychotic therapy
     Dosage: 10 MILLIGRAM
     Route: 048
  2. ARIPIPRAZOLE [Interacting]
     Active Substance: ARIPIPRAZOLE
     Indication: Bipolar disorder
     Dosage: 20 MILLIGRAM
     Route: 048
  3. ARIPIPRAZOLE [Interacting]
     Active Substance: ARIPIPRAZOLE
     Dosage: 30 MILLIGRAM
     Route: 048
  4. SERTRALINE [Suspect]
     Active Substance: SERTRALINE HYDROCHLORIDE
     Indication: Bipolar disorder
     Dosage: UNK
     Route: 065
  5. LITHIUM [Interacting]
     Active Substance: LITHIUM
     Indication: Antipsychotic therapy
     Dosage: 600 MILLIGRAM, QHS
     Route: 048
  6. LITHIUM [Interacting]
     Active Substance: LITHIUM
     Indication: Bipolar disorder
     Dosage: 900 MILLIGRAM, QHS
     Route: 048
  7. ARIPIPRAZOLE [Concomitant]
     Active Substance: ARIPIPRAZOLE
     Indication: Bipolar disorder
     Dosage: 300 MILLIGRAM, EVERY MONTH
     Route: 065

REACTIONS (17)
  - Neuroleptic malignant syndrome [Recovered/Resolved]
  - Serotonin syndrome [Unknown]
  - Hallucinations, mixed [Unknown]
  - Mental impairment [Unknown]
  - Delusion [Unknown]
  - Psychomotor retardation [Unknown]
  - Tremor [Unknown]
  - Loss of personal independence in daily activities [Unknown]
  - Leukocytosis [Recovered/Resolved]
  - Pyrexia [Recovered/Resolved]
  - Hypertension [Recovered/Resolved]
  - Tachypnoea [Recovered/Resolved]
  - Tachycardia [Recovered/Resolved]
  - Hyperhidrosis [Recovered/Resolved]
  - Muscle rigidity [Recovered/Resolved]
  - Akathisia [Unknown]
  - Drug interaction [Unknown]
